FAERS Safety Report 21008897 (Version 1)
Quarter: 2022Q2

REPORT INFORMATION
  Report Type: Spontaneous
  Country: US (occurrence: US)
  Receive Date: 20220627
  Receipt Date: 20220627
  Transmission Date: 20220721
  Serious: No
  Sender: FDA-Public Use
  Company Number: US-GSKCCFUS-Case-01417120_AE-81519

PATIENT
  Sex: Female

DRUGS (1)
  1. INCRUSE ELLIPTA [Suspect]
     Active Substance: UMECLIDINIUM BROMIDE
     Indication: Product used for unknown indication
     Dosage: UNK
     Dates: start: 20220607

REACTIONS (8)
  - Myalgia [Unknown]
  - Arthralgia [Unknown]
  - Back pain [Unknown]
  - Eye pain [Unknown]
  - Ear pain [Unknown]
  - Rhinorrhoea [Unknown]
  - Rhinalgia [Unknown]
  - Pain [Unknown]
